FAERS Safety Report 21409188 (Version 2)
Quarter: 2022Q4

REPORT INFORMATION
  Report Type: Spontaneous
  Country: NL (occurrence: NL)
  Receive Date: 20221004
  Receipt Date: 20221104
  Transmission Date: 20230112
  Serious: Yes (Death, Life-Threatening, Hospitalization, Other)
  Sender: FDA-Public Use
  Company Number: NL-TEVA-2022-NL-2079788

PATIENT
  Age: 70 Year
  Weight: 67 kg

DRUGS (14)
  1. CISPLATIN [Suspect]
     Active Substance: CISPLATIN
     Indication: Diffuse large B-cell lymphoma stage IV
     Dosage: ON DAY 1
     Route: 065
  2. DEXAMETHASONE [Suspect]
     Active Substance: DEXAMETHASONE
     Indication: Diffuse large B-cell lymphoma stage IV
     Dosage: 40 MILLIGRAM DAILY; ON DAY 1 THROUGH DAY 4
     Route: 065
  3. METHOTREXATE [Suspect]
     Active Substance: METHOTREXATE
     Indication: Diffuse large B-cell lymphoma stage IV
     Dosage: HIGH-DOSE
     Route: 065
  4. RITUXIMAB [Suspect]
     Active Substance: RITUXIMAB
     Indication: Diffuse large B-cell lymphoma stage IV
     Dosage: ON DAY 1
     Route: 065
  5. CYTARABINE [Suspect]
     Active Substance: CYTARABINE
     Indication: Diffuse large B-cell lymphoma stage IV
     Dosage: 4000 MG/M2 DAILY; ON DAY 2
     Route: 065
  6. ACTIVATED CHARCOAL [Suspect]
     Active Substance: ACTIVATED CHARCOAL
     Indication: Toxicity to various agents
     Route: 065
  7. LEUCOVORIN [Suspect]
     Active Substance: LEUCOVORIN
     Indication: Toxicity to various agents
     Dosage: EYE DROPS
     Route: 065
  8. LEUCOVORIN [Suspect]
     Active Substance: LEUCOVORIN
     Dosage: MOUTHWASH
     Route: 065
  9. LEUCOVORIN [Suspect]
     Active Substance: LEUCOVORIN
     Dosage: 1200 MILLIGRAM DAILY;
     Route: 041
  10. SODIUM SULFATE [Suspect]
     Active Substance: SODIUM SULFATE
     Indication: Toxicity to various agents
     Route: 065
  11. DEXTROSE [Concomitant]
     Active Substance: DEXTROSE
     Indication: Hypervolaemia
     Dosage: HYPERHYDRATION WITH 4 LITERS GLUCOSE 2.5% / SODIUM CHLORIDE 0.45% (INCLUDING PER LITER 20 ML SODI...
     Route: 065
  12. SODIUM CHLORIDE [Concomitant]
     Active Substance: SODIUM CHLORIDE
     Indication: Hypervolaemia
     Dosage: HYPERHYDRATION WITH 4 LITERS GLUCOSE 2.5% / SODIUM CHLORIDE 0.45% (INCLUDING PER LITER 20 ML SODI...
     Route: 065
  13. SODIUM BICARBONATE [Concomitant]
     Active Substance: SODIUM BICARBONATE
     Indication: Hypervolaemia
     Dosage: HYPERHYDRATION WITH 4 LITERS GLUCOSE 2.5% / SODIUM CHLORIDE 0.45% (INCLUDING PER LITER 20 ML SODI...
     Route: 065
  14. POTASSIUM CHLORIDE [Concomitant]
     Active Substance: POTASSIUM CHLORIDE
     Indication: Hypervolaemia
     Dosage: HYPERHYDRATION WITH 4 LITERS GLUCOSE 2.5% / SODIUM CHLORIDE 0.45% (INCLUDING PER LITER 20 ML SODI...
     Route: 065

REACTIONS (8)
  - Toxicity to various agents [Fatal]
  - Drug ineffective [Fatal]
  - Erysipelas [Unknown]
  - Neutropenia [Unknown]
  - Deep vein thrombosis [Unknown]
  - Inappropriate antidiuretic hormone secretion [Unknown]
  - Acute kidney injury [Unknown]
  - Respiratory failure [Unknown]
